FAERS Safety Report 19952721 (Version 1)
Quarter: 2021Q4

REPORT INFORMATION
  Report Type: Spontaneous
  Country: US (occurrence: US)
  Receive Date: 20211012
  Receipt Date: 20211012
  Transmission Date: 20220303
  Serious: Yes (Hospitalization)
  Sender: FDA-Public Use
  Company Number: None

PATIENT
  Age: 72 Year
  Sex: Male

DRUGS (1)
  1. APIXABAN [Suspect]
     Active Substance: APIXABAN
     Route: 048
     Dates: start: 20201224, end: 20210914

REACTIONS (3)
  - Haemorrhoids [None]
  - Large intestine polyp [None]
  - Gastric haemorrhage [None]

NARRATIVE: CASE EVENT DATE: 20210914
